FAERS Safety Report 19238175 (Version 1)
Quarter: 2021Q2

REPORT INFORMATION
  Report Type: Spontaneous
  Country: US (occurrence: US)
  Receive Date: 20210510
  Receipt Date: 20210510
  Transmission Date: 20210717
  Serious: Yes (Other)
  Sender: FDA-Public Use
  Company Number: None

PATIENT
  Age: 68 Year
  Sex: Male
  Weight: 94.5 kg

DRUGS (7)
  1. TOPROL XL [Concomitant]
     Active Substance: METOPROLOL SUCCINATE
  2. FISH OIL [Concomitant]
     Active Substance: FISH OIL
  3. MVI [Concomitant]
     Active Substance: VITAMINS
  4. DIGOXIN. [Concomitant]
     Active Substance: DIGOXIN
  5. COREG [Concomitant]
     Active Substance: CARVEDILOL
  6. WARFARIN [Concomitant]
     Active Substance: WARFARIN
  7. BLENREP [Suspect]
     Active Substance: BELANTAMAB MAFODOTIN-BLMF
     Indication: PLASMA CELL MYELOMA
     Route: 042
     Dates: start: 20210304, end: 20210325

REACTIONS (1)
  - Keratitis [None]

NARRATIVE: CASE EVENT DATE: 20210403
